FAERS Safety Report 7020190-4 (Version None)
Quarter: 2010Q3

REPORT INFORMATION
  Report Type: 
  Country: None (occurrence: None)
  Receive Date: 20100929
  Receipt Date: 20100916
  Transmission Date: 20110219
  Serious: Yes (Hospitalization)
  Sender: FDA-Public Use
  Company Number: SE-CELGENEUS-150-21880-10090003

PATIENT
  Sex: Female
  Weight: 97.7 kg

DRUGS (28)
  1. REVLIMID [Suspect]
     Indication: MULTIPLE MYELOMA
     Route: 048
     Dates: end: 20100628
  2. REVLIMID [Suspect]
     Route: 048
     Dates: start: 20100706, end: 20100714
  3. HYDROCHLOROTHAIZIDE/LOSARTAN [Concomitant]
     Indication: HYPERTENSION
     Route: 048
     Dates: start: 20020101
  4. SIMVASTATIN [Concomitant]
     Indication: HYPERCHOLESTEROLAEMIA
     Route: 048
     Dates: start: 20060101, end: 20100415
  5. PAMIDRONATE DISODIUM [Concomitant]
     Indication: HYPERCALCAEMIA
     Route: 051
     Dates: start: 20100323, end: 20100323
  6. FRUSEMIDE [Concomitant]
     Indication: HYPERTENSION
     Route: 048
     Dates: start: 20100305, end: 20100630
  7. FRUSEMIDE [Concomitant]
     Route: 051
     Dates: start: 20100414, end: 20100622
  8. DALTEPARIN SODIUM [Concomitant]
     Indication: THROMBOSIS PROPHYLAXIS
     Route: 058
     Dates: start: 20100331, end: 20100419
  9. OMEPRAZOLE [Concomitant]
     Indication: GASTRITIS PROPHYLAXIS
     Route: 048
     Dates: start: 20100428, end: 20100706
  10. CALCIUM CARBONATE [Concomitant]
     Indication: PROPHYLAXIS
     Route: 048
     Dates: start: 20100414, end: 20100623
  11. OSELTAMIVIR [Concomitant]
     Indication: PROPHYLAXIS
     Dates: start: 20100425
  12. ESTRADIOL [Concomitant]
     Indication: MENOPAUSE
     Route: 067
     Dates: start: 20090924
  13. ACETAMINOPHEN [Concomitant]
     Indication: PAIN
     Route: 048
     Dates: start: 20100331
  14. PENTACARINAT [Concomitant]
     Route: 055
     Dates: start: 20100428, end: 20100705
  15. RETACRIT [Concomitant]
     Indication: ANAEMIA
     Route: 058
     Dates: start: 20100622, end: 20100908
  16. RINGER ACETATE [Concomitant]
     Indication: DEHYDRATION
     Route: 051
     Dates: start: 20100624, end: 20100624
  17. RINGER ACETATE [Concomitant]
     Route: 051
     Dates: start: 20100625, end: 20100625
  18. RINGER ACETATE [Concomitant]
     Route: 051
     Dates: start: 20100626, end: 20100626
  19. RINGER ACETATE [Concomitant]
     Route: 051
     Dates: start: 20100627, end: 20100627
  20. RINGER ACETATE [Concomitant]
     Route: 051
     Dates: start: 20100714, end: 20100715
  21. DALACIN [Concomitant]
     Indication: INFECTION
     Dates: start: 20100629
  22. FURADANTIN [Concomitant]
     Indication: URINARY TRACT INFECTION
     Route: 048
     Dates: start: 20100624, end: 20100628
  23. FURADANTIN [Concomitant]
     Route: 048
     Dates: start: 20100622, end: 20100623
  24. PEVARYL [Concomitant]
     Indication: FUNGAL INFECTION
     Route: 062
     Dates: start: 20100624, end: 20100901
  25. CALCICHEW [Concomitant]
     Indication: PROPHYLAXIS
     Dosage: 500/400 MG
     Route: 048
     Dates: start: 20100624, end: 20100825
  26. FRAGMIN [Concomitant]
     Indication: THROMBOSIS PROPHYLAXIS
     Route: 058
     Dates: start: 20100428, end: 20100901
  27. BRICANYL [Concomitant]
     Indication: PRODUCT USED FOR UNKNOWN INDICATION
     Route: 055
     Dates: start: 20100428
  28. COCILLANA ETYFIN [Concomitant]
     Indication: COUGH
     Dosage: 5-10 ML AS NEEDED
     Route: 048
     Dates: start: 20100706, end: 20100909

REACTIONS (3)
  - ASTHENIA [None]
  - BLOOD CREATININE INCREASED [None]
  - SKIN ULCER [None]
